FAERS Safety Report 5938132-9 (Version None)
Quarter: 2008Q4

REPORT INFORMATION
  Report Type: 
  Country: None (occurrence: None)
  Receive Date: 20081031
  Receipt Date: 20081020
  Transmission Date: 20090506
  Serious: No
  Sender: FDA-Public Use
  Company Number: US-B.I. PHARMACEUTICALS,INC./RIDGEFIELD-2008-BP-16110BP

PATIENT
  Sex: Female

DRUGS (3)
  1. COMBIVENT [Suspect]
     Indication: CHRONIC OBSTRUCTIVE PULMONARY DISEASE
     Dosage: 8PUF
     Route: 055
     Dates: start: 20081001
  2. FLOVENT [Concomitant]
  3. ALBUTEROL [Concomitant]

REACTIONS (4)
  - DYSGEUSIA [None]
  - MALAISE [None]
  - PULMONARY CONGESTION [None]
  - RESPIRATORY TRACT IRRITATION [None]
